FAERS Safety Report 16411753 (Version 10)
Quarter: 2024Q1

REPORT INFORMATION
  Report Type: Report from Study
  Country: US (occurrence: US)
  Receive Date: 20190610
  Receipt Date: 20240130
  Transmission Date: 20240410
  Serious: Yes (Hospitalization, Other)
  Sender: FDA-Public Use
  Company Number: US-SHIRE-US201918588

PATIENT
  Age: 66 Year
  Sex: Male

DRUGS (4)
  1. VELAGLUCERASE ALFA [Suspect]
     Active Substance: VELAGLUCERASE ALFA
     Indication: Gaucher^s disease
     Dosage: 12 DOSAGE FORM, Q2WEEKS
     Route: 042
     Dates: start: 20111025
  2. VELAGLUCERASE ALFA [Suspect]
     Active Substance: VELAGLUCERASE ALFA
     Dosage: UNK, Q2WEEKS
     Route: 042
  3. VELAGLUCERASE ALFA [Suspect]
     Active Substance: VELAGLUCERASE ALFA
     Dosage: 12 DOSAGE FORM, Q2WEEKS
     Route: 042
     Dates: start: 20111125
  4. VELAGLUCERASE ALFA [Suspect]
     Active Substance: VELAGLUCERASE ALFA
     Dosage: UNK, Q2WEEKS
     Route: 042
     Dates: start: 20111225

REACTIONS (11)
  - COVID-19 pneumonia [Recovered/Resolved]
  - Nephrolithiasis [Recovered/Resolved]
  - Arteriosclerosis [Not Recovered/Not Resolved]
  - Pneumonia [Recovering/Resolving]
  - Dementia [Unknown]
  - Bone disorder [Not Recovered/Not Resolved]
  - Fall [Unknown]
  - Foot fracture [Recovered/Resolved]
  - Respiratory syncytial virus infection [Recovering/Resolving]
  - Blood pressure increased [Recovering/Resolving]
  - Malaise [Unknown]

NARRATIVE: CASE EVENT DATE: 20191203
